FAERS Safety Report 9580158 (Version 2)
Quarter: 2013Q4

REPORT INFORMATION
  Report Type: Spontaneous
  Country: US (occurrence: US)
  Receive Date: 20131002
  Receipt Date: 20131018
  Transmission Date: 20140711
  Serious: Yes (Other)
  Sender: FDA-Public Use
  Company Number: GXBR2013US001736

PATIENT
  Sex: Female

DRUGS (2)
  1. CHOLESTYRAMINE FOR ORAL SUSPENSION USP [Suspect]
     Indication: DIARRHOEA
     Dosage: 4 G, QD
     Route: 048
     Dates: start: 20130918, end: 20130924
  2. CHOLESTYRAMINE FOR ORAL SUSPENSION USP [Suspect]
     Indication: ABDOMINAL PAIN

REACTIONS (5)
  - Chest discomfort [Recovering/Resolving]
  - Eye swelling [Recovering/Resolving]
  - Dyspnoea [Recovering/Resolving]
  - Diarrhoea [Not Recovered/Not Resolved]
  - Drug ineffective [Not Recovered/Not Resolved]
